FAERS Safety Report 23713111 (Version 1)
Quarter: 2024Q2

REPORT INFORMATION
  Report Type: Spontaneous
  Country: US (occurrence: None)
  Receive Date: 20240405
  Receipt Date: 20240405
  Transmission Date: 20240715
  Serious: Yes (Other)
  Sender: FDA-Public Use
  Company Number: None

PATIENT
  Age: 50 Year
  Sex: Female
  Weight: 63 kg

DRUGS (5)
  1. AIMOVIG [Suspect]
     Active Substance: ERENUMAB-AOOE
     Indication: Migraine
     Dosage: OTHER FREQUENCY : MONTHLY;?
     Route: 058
     Dates: start: 20220401, end: 20221031
  2. APRISO [Concomitant]
     Active Substance: MESALAMINE
  3. ARMOUR THYROID [Concomitant]
     Active Substance: THYROID, PORCINE
  4. VITAMINS [Concomitant]
     Active Substance: VITAMINS
  5. HERBALS\TURMERIC [Concomitant]
     Active Substance: HERBALS\TURMERIC

REACTIONS (5)
  - Peripheral coldness [None]
  - Raynaud^s phenomenon [None]
  - Therapy cessation [None]
  - Constipation [None]
  - Condition aggravated [None]

NARRATIVE: CASE EVENT DATE: 20221001
